FAERS Safety Report 6504779-4 (Version None)
Quarter: 2009Q4

REPORT INFORMATION
  Report Type: 
  Country: None (occurrence: None)
  Receive Date: 20091218
  Receipt Date: 20091210
  Transmission Date: 20100525
  Serious: No
  Sender: FDA-Public Use
  Company Number: NL-ASTRAZENECA-2009SE28413

PATIENT
  Age: 13337 Day
  Sex: Male
  Weight: 82 kg

DRUGS (2)
  1. SEROQUEL XR [Suspect]
     Indication: BIPOLAR DISORDER
     Route: 048
     Dates: start: 20090916
  2. SEROQUEL XR [Suspect]
     Dosage: ONCE 100 MG AT 8.00 + 200 MG ANTE NOCTEM
     Route: 048
     Dates: start: 20090924, end: 20091114

REACTIONS (1)
  - MYOCLONUS [None]
